FAERS Safety Report 13871854 (Version 24)
Quarter: 2018Q4

REPORT INFORMATION
  Report Type: Report from Study
  Country: US (occurrence: US)
  Receive Date: 20170816
  Receipt Date: 20181012
  Transmission Date: 20190204
  Serious: Yes (Hospitalization)
  Sender: FDA-Public Use
  Company Number: US-SA-2017SA147937

PATIENT
  Age: 61 Year
  Sex: Female
  Weight: 71 kg

DRUGS (9)
  1. IBUPROFEN. [Concomitant]
     Active Substance: IBUPROFEN
     Dosage: 200 MG,QD
     Route: 048
     Dates: start: 20170729
  2. MOMETASONE FUROATE. [Suspect]
     Active Substance: MOMETASONE FUROATE
     Indication: NASAL POLYPS
     Dosage: UNK
     Dates: start: 20170627
  3. SALBUTAMOL [Concomitant]
     Active Substance: ALBUTEROL
     Indication: ASTHMA
     Dosage: 180 UG,QD
     Route: 055
     Dates: start: 20020906
  4. HYDROCHLOROTHIAZIDE. [Concomitant]
     Active Substance: HYDROCHLOROTHIAZIDE
     Dosage: 25 MG,QD
     Route: 048
     Dates: start: 20070611
  5. DULERA [Concomitant]
     Active Substance: FORMOTEROL FUMARATE DIHYDRATE\MOMETASONE FUROATE
     Indication: ASTHMA
     Dosage: 800 UG,QD
     Route: 055
     Dates: start: 20170731
  6. DETROL [Concomitant]
     Active Substance: TOLTERODINE TARTRATE
     Dosage: 1 MG,QD
     Route: 048
     Dates: start: 20150316
  7. DUPILUMAB [Suspect]
     Active Substance: DUPILUMAB
     Indication: NASAL POLYPS
     Dosage: 300 MG,QOW
     Route: 058
     Dates: start: 20170728, end: 20170728
  8. ALLEGRA [Concomitant]
     Active Substance: FEXOFENADINE HYDROCHLORIDE
     Dosage: 180 MG,QD
     Route: 065
     Dates: start: 20000414
  9. CYCLOBENZAPRINE HYDROCHLORIDE. [Concomitant]
     Active Substance: CYCLOBENZAPRINE HYDROCHLORIDE
     Dosage: 5 MG,QD
     Route: 048
     Dates: start: 20170731, end: 20170804

REACTIONS (1)
  - Eosinophilic granulomatosis with polyangiitis [Not Recovered/Not Resolved]

NARRATIVE: CASE EVENT DATE: 20170804
